FAERS Safety Report 15016812 (Version 3)
Quarter: 2018Q3

REPORT INFORMATION
  Report Type: Report from Study
  Country: US (occurrence: US)
  Receive Date: 20180615
  Receipt Date: 20180801
  Transmission Date: 20181010
  Serious: Yes (Hospitalization, Disabling, Other)
  Sender: FDA-Public Use
  Company Number: US-OTSUKA-2017_016015

PATIENT
  Age: 31 Year
  Sex: Male

DRUGS (2)
  1. ADDERALL [Concomitant]
     Active Substance: AMPHETAMINE ASPARTATE\AMPHETAMINE SULFATE\DEXTROAMPHETAMINE SACCHARATE\DEXTROAMPHETAMINE SULFATE
     Indication: ATTENTION DEFICIT/HYPERACTIVITY DISORDER
     Dosage: UNK
     Route: 065
  2. ARIPIPRAZOLE. [Suspect]
     Active Substance: ARIPIPRAZOLE
     Indication: SCHIZOPHRENIA
     Dosage: 400 MG, QM
     Route: 030
     Dates: start: 201706, end: 20180427

REACTIONS (9)
  - Disability [Unknown]
  - Urine analysis abnormal [Unknown]
  - Infection [Unknown]
  - Hydrocephalus [Unknown]
  - Headache [Unknown]
  - Aggression [Not Recovered/Not Resolved]
  - Therapy cessation [Unknown]
  - Drug monitoring procedure not performed [Unknown]
  - Anger [Unknown]

NARRATIVE: CASE EVENT DATE: 201801
